FAERS Safety Report 5732769-8 (Version None)
Quarter: 2008Q2

REPORT INFORMATION
  Report Type: 
  Country: None (occurrence: None)
  Receive Date: 20080506
  Receipt Date: 20080506
  Transmission Date: 20081010
  Serious: Yes (Other)
  Sender: FDA-Public Use
  Company Number: None

PATIENT
  Sex: Male
  Weight: 86.8 kg

DRUGS (1)
  1. DAPTOMYCIN  500MG [Suspect]
     Indication: ENTEROCOCCAL INFECTION
     Dosage: 500MG Q 24 HOURS IV;  330MG Q 24 HOURS IV
     Route: 042
     Dates: start: 20080321, end: 20080506

REACTIONS (1)
  - EOSINOPHIL COUNT INCREASED [None]
